FAERS Safety Report 13285974 (Version 1)
Quarter: 2017Q1

REPORT INFORMATION
  Report Type: Spontaneous
  Country: US (occurrence: US)
  Receive Date: 20170302
  Receipt Date: 20170302
  Transmission Date: 20170428
  Serious: No
  Sender: FDA-Public Use
  Company Number: US-ALLERGAN-1672139US

PATIENT
  Sex: Female

DRUGS (1)
  1. VIIBRYD [Suspect]
     Active Substance: VILAZODONE HYDROCHLORIDE
     Indication: DEPRESSION
     Dosage: 40 MG, UNK
     Route: 048
     Dates: start: 2014

REACTIONS (4)
  - Drug effect decreased [Unknown]
  - Diarrhoea [Recovered/Resolved]
  - Wrong technique in product usage process [Unknown]
  - Paraesthesia [Recovered/Resolved]
